FAERS Safety Report 10149121 (Version 1)
Quarter: 2014Q2

REPORT INFORMATION
  Report Type: Report from Study
  Country: GB (occurrence: GB)
  Receive Date: 20140502
  Receipt Date: 20140502
  Transmission Date: 20141212
  Serious: Yes (Other)
  Sender: FDA-Public Use
  Company Number: GB-JNJFOC-20140416271

PATIENT
  Age: 70 Year
  Sex: Male
  Weight: 85.9 kg

DRUGS (8)
  1. STELARA [Suspect]
     Indication: PSORIASIS
     Route: 058
     Dates: start: 20101025
  2. AMLODIPINE [Concomitant]
     Route: 065
     Dates: start: 20060111
  3. ASPIRIN [Concomitant]
     Route: 065
     Dates: start: 20050619
  4. RAMIPRIL [Concomitant]
     Route: 065
     Dates: start: 20050622
  5. ROSUVASTATIN [Concomitant]
     Route: 065
     Dates: start: 20060811
  6. PREDNISOLONE [Concomitant]
     Route: 065
     Dates: start: 20131220
  7. FEXOFENADINE [Concomitant]
     Route: 065
     Dates: start: 20131223
  8. ATARAX [Concomitant]
     Route: 065
     Dates: start: 20131223

REACTIONS (1)
  - Squamous cell carcinoma [Recovered/Resolved]
